FAERS Safety Report 6895329-1 (Version None)
Quarter: 2010Q3

REPORT INFORMATION
  Report Type: 
  Country: None (occurrence: None)
  Receive Date: 20100802
  Receipt Date: 20100721
  Transmission Date: 20110219
  Serious: Yes (Hospitalization)
  Sender: FDA-Public Use
  Company Number: JP-AMGEN-US329290

PATIENT
  Sex: Female
  Weight: 40 kg

DRUGS (10)
  1. ENBREL [Suspect]
     Indication: RHEUMATOID ARTHRITIS
     Route: 058
     Dates: start: 20081023, end: 20090108
  2. TACROLIMUS [Concomitant]
     Indication: RHEUMATOID ARTHRITIS
     Route: 048
     Dates: end: 20090122
  3. JUVELA [Concomitant]
     Indication: SCLERODERMA
     Route: 048
  4. BERAPROST SODIUM [Concomitant]
     Indication: SCLERODERMA
     Route: 048
  5. GASMOTIN [Concomitant]
     Indication: SCLERODERMA
     Route: 048
     Dates: end: 20090122
  6. ALFACALCIDOL [Concomitant]
     Indication: OSTEOPOROSIS
     Route: 048
  7. CELECOXIB [Concomitant]
     Indication: RHEUMATOID ARTHRITIS
     Route: 048
     Dates: end: 20090122
  8. BONALON [Concomitant]
     Indication: OSTEOPOROSIS
     Route: 048
  9. PREDONINE [Concomitant]
     Indication: SCLERODERMA
     Route: 048
  10. RABEPRAZOLE SODIUM [Concomitant]
     Indication: REFLUX OESOPHAGITIS
     Route: 048

REACTIONS (1)
  - HENOCH-SCHONLEIN PURPURA [None]
